FAERS Safety Report 19559410 (Version 2)
Quarter: 2022Q4

REPORT INFORMATION
  Report Type: Spontaneous
  Country: US (occurrence: US)
  Receive Date: 20210714
  Receipt Date: 20221107
  Transmission Date: 20230112
  Serious: Yes (Hospitalization)
  Sender: FDA-Public Use
  Company Number: US-SK LIFE SCIENCE, INC-SKPVG-2020-000290

PATIENT

DRUGS (11)
  1. XCOPRI [Suspect]
     Active Substance: CENOBAMATE
     Indication: Epilepsy
     Dosage: UNK
     Route: 048
     Dates: start: 2020
  2. XCOPRI [Suspect]
     Active Substance: CENOBAMATE
     Dosage: 200 MILLIGRAM, QD ONE TIME DAILY
     Route: 048
     Dates: start: 2020
  3. XCOPRI [Suspect]
     Active Substance: CENOBAMATE
     Dosage: 300 MILLIGRAM, 100MG IN THE MORNING AND 200MG AT NIGHT
     Route: 048
     Dates: start: 2020
  4. LAMICTAL [Suspect]
     Active Substance: LAMOTRIGINE
     Indication: Product used for unknown indication
     Dosage: TAPERED OFF
     Route: 065
  5. LAMICTAL [Suspect]
     Active Substance: LAMOTRIGINE
     Dosage: 25MG TWO TABLETS DAILY IN THE MORNING AND TWO 25MG TABLETS AT NIGHT
     Route: 065
  6. TOPAMAX [Suspect]
     Active Substance: TOPIRAMATE
     Indication: Product used for unknown indication
     Dosage: 200MG ONE IN THE MORNING, AND TWO 200MG TABLETS AT NIGHT
     Route: 065
  7. KEPPRA [Concomitant]
     Active Substance: LEVETIRACETAM
     Indication: Product used for unknown indication
     Dosage: UNK
     Route: 065
     Dates: end: 20200926
  8. LOMOTIL                            /00034001/ [Concomitant]
     Indication: Product used for unknown indication
     Dosage: 4 TABLETS AT NIGHT
     Route: 065
  9. LANSOPRAZOLE [Concomitant]
     Active Substance: LANSOPRAZOLE
     Indication: Product used for unknown indication
     Dosage: 15 MILLIGRAM, TWO TABLETS AT NIGHT
     Route: 065
  10. LOPERAMIDE                         /00384302/ [Concomitant]
     Indication: Product used for unknown indication
     Dosage: 2 MILLIGRAM, 4 TABLETS AT NIGHT
     Route: 065
  11. PREVALITE [Concomitant]
     Active Substance: CHOLESTYRAMINE
     Indication: Product used for unknown indication
     Dosage: 4 MILLIGRAM, AT NIGHT
     Route: 065

REACTIONS (9)
  - Vagal nerve stimulator implantation [Unknown]
  - Dysstasia [Recovering/Resolving]
  - Fall [Unknown]
  - Feeling drunk [Recovering/Resolving]
  - Motor dysfunction [Unknown]
  - Gait disturbance [Recovering/Resolving]
  - Dizziness [Unknown]
  - Somnolence [Recovering/Resolving]
  - Balance disorder [Recovering/Resolving]

NARRATIVE: CASE EVENT DATE: 20200101
